FAERS Safety Report 5927002-8 (Version None)
Quarter: 2008Q4

REPORT INFORMATION
  Report Type: 
  Country: None (occurrence: None)
  Receive Date: 20081021
  Receipt Date: 20081021
  Transmission Date: 20090506
  Serious: No
  Sender: FDA-Public Use
  Company Number: None

PATIENT
  Age: 62 Year
  Sex: Male
  Weight: 71.2147 kg

DRUGS (1)
  1. DOXYCYCLINE HYCLATE [Suspect]
     Indication: RASH
     Dosage: 30 ONE A DAY

REACTIONS (15)
  - ABDOMINAL DISCOMFORT [None]
  - ANOREXIA [None]
  - APHONIA [None]
  - EAR DISCOMFORT [None]
  - EAR PAIN [None]
  - ERYTHEMA [None]
  - FEELING HOT [None]
  - GAIT DISTURBANCE [None]
  - HEADACHE [None]
  - NECK PAIN [None]
  - OEDEMA PERIPHERAL [None]
  - OROPHARYNGEAL PAIN [None]
  - PYREXIA [None]
  - VOMITING [None]
  - WEIGHT DECREASED [None]
